FAERS Safety Report 10419532 (Version 3)
Quarter: 2014Q4

REPORT INFORMATION
  Report Type: Spontaneous
  Country: US (occurrence: US)
  Receive Date: 20140829
  Receipt Date: 20141106
  Transmission Date: 20150528
  Serious: No
  Sender: FDA-Public Use
  Company Number: US-LUNDBECK-DKLU1102693

PATIENT
  Age: 7 Month
  Sex: Female

DRUGS (2)
  1. SABRIL [Suspect]
     Active Substance: VIGABATRIN
     Indication: INFANTILE SPASMS
     Route: 048
     Dates: start: 20140407
  2. SABRIL [Suspect]
     Active Substance: VIGABATRIN
     Dates: start: 201403

REACTIONS (1)
  - Nystagmus [Recovering/Resolving]

NARRATIVE: CASE EVENT DATE: 20140722
